FAERS Safety Report 5647538-7 (Version None)
Quarter: 2008Q1

REPORT INFORMATION
  Report Type: 
  Country: None (occurrence: None)
  Receive Date: 20080131
  Receipt Date: 20071004
  Transmission Date: 20080703
  Serious: No
  Sender: FDA-Public Use
  Company Number: 163-21880-07100246

PATIENT
  Age: 59 Year
  Sex: Female

DRUGS (2)
  1. REVLIMID [Suspect]
     Indication: MULTIPLE MYELOMA
     Dosage: 15 MG, 3 IN 1 D, ORAL ; 25 MG, 1 IN 1 D, ORAL
     Route: 048
     Dates: start: 20070924, end: 20071001
  2. REVLIMID [Suspect]
     Indication: MULTIPLE MYELOMA
     Dosage: 15 MG, 3 IN 1 D, ORAL ; 25 MG, 1 IN 1 D, ORAL
     Route: 048
     Dates: start: 20071004

REACTIONS (1)
  - DRUG INTOLERANCE [None]
